FAERS Safety Report 9680352 (Version 2)
Quarter: 2015Q1

REPORT INFORMATION
  Report Type: Report from Study
  Country: US (occurrence: US)
  Receive Date: 20131111
  Receipt Date: 20150205
  Transmission Date: 20150721
  Serious: Yes (Death)
  Sender: FDA-Public Use
  Company Number: US-ROCHE-1302036

PATIENT
  Age: 46 Year
  Sex: Female

DRUGS (26)
  1. AVASTIN [Suspect]
     Active Substance: BEVACIZUMAB
     Indication: BONE CANCER
     Dosage: RECEIVED ON 23/NOV/2010 AT SAME DOSE.
     Route: 042
     Dates: start: 20100831
  2. AVASTIN [Suspect]
     Active Substance: BEVACIZUMAB
     Route: 042
  3. 5-FU [Concomitant]
     Active Substance: FLUOROURACIL
     Route: 042
  4. ATROPINE [Concomitant]
     Active Substance: ATROPINE
     Route: 042
  5. ATIVAN [Concomitant]
     Active Substance: LORAZEPAM
     Route: 042
  6. FUSILEV [Concomitant]
     Active Substance: LEVOLEUCOVORIN CALCIUM
     Route: 042
  7. AVASTIN [Suspect]
     Active Substance: BEVACIZUMAB
     Route: 042
     Dates: start: 20101012
  8. CAMPTOSAR [Concomitant]
     Active Substance: IRINOTECAN HYDROCHLORIDE
     Route: 042
  9. LEUCOVORIN [Concomitant]
     Active Substance: LEUCOVORIN
     Route: 042
  10. PEPCID [Concomitant]
     Active Substance: FAMOTIDINE
     Route: 042
  11. NORMAL SALINE [Concomitant]
     Active Substance: SODIUM CHLORIDE
     Route: 042
  12. AVASTIN [Suspect]
     Active Substance: BEVACIZUMAB
     Dosage: RECEIVED ON 28/SEP/2010, 26/OCT/2010, 10/NOV/2010, 07/DEC/2010, 21/DEC/2010, 04/JAN/2011, AND 18/JAN
     Route: 042
     Dates: start: 20100914
  13. 5-FU [Concomitant]
     Active Substance: FLUOROURACIL
     Route: 042
  14. AVASTIN [Suspect]
     Active Substance: BEVACIZUMAB
     Indication: COLON CANCER
     Dosage: RECEIVED ON 01/FEB/2011 AND 28/FEB/2011 AT SAME DOSE.
     Route: 042
  15. AVASTIN [Suspect]
     Active Substance: BEVACIZUMAB
     Route: 042
     Dates: start: 20100817
  16. BACTRIM [Suspect]
     Active Substance: SULFAMETHOXAZOLE\TRIMETHOPRIM
     Indication: PRODUCT USED FOR UNKNOWN INDICATION
     Route: 065
  17. PHENERGAN [Concomitant]
     Active Substance: PROMETHAZINE HYDROCHLORIDE
     Indication: VOMITING
     Route: 042
  18. MORPHINE [Concomitant]
     Active Substance: MORPHINE
     Route: 042
  19. AVASTIN [Suspect]
     Active Substance: BEVACIZUMAB
     Indication: BONE CANCER
     Dosage: RECEIVED ON 14/MAR/2011, 28/MAR/2011 AND 25/APR/2011 AT SAME DOSE.
     Route: 042
     Dates: start: 20110214
  20. AVASTIN [Suspect]
     Active Substance: BEVACIZUMAB
     Indication: RECTAL CANCER
     Dosage: RECEIVED ON 12/MAY/2011 AND 02/JUN/2011 AT SAME DOSE.
     Route: 042
     Dates: start: 20100406
  21. OXALIPLATIN. [Concomitant]
     Active Substance: OXALIPLATIN
     Route: 042
  22. HEPARIN [Concomitant]
     Active Substance: HEPARIN SODIUM
     Route: 065
  23. KYTRIL [Suspect]
     Active Substance: GRANISETRON HYDROCHLORIDE
     Indication: PRODUCT USED FOR UNKNOWN INDICATION
     Dosage: RECEIVED ON 02/JUN/2011.
     Route: 041
  24. DECADRON [Concomitant]
     Active Substance: DEXAMETHASONE
     Route: 042
  25. ZOMETA [Concomitant]
     Active Substance: ZOLEDRONIC ACID
     Route: 042
  26. ALOXI [Concomitant]
     Active Substance: PALONOSETRON HYDROCHLORIDE
     Route: 042

REACTIONS (3)
  - Drug hypersensitivity [Unknown]
  - Death [Fatal]
  - Pain [Unknown]

NARRATIVE: CASE EVENT DATE: 20110711
